FAERS Safety Report 5742976-6 (Version None)
Quarter: 2008Q2

REPORT INFORMATION
  Report Type: 
  Country: None (occurrence: None)
  Receive Date: 20080519
  Receipt Date: 20080515
  Transmission Date: 20081010
  Serious: Yes (Other)
  Sender: FDA-Public Use
  Company Number: PHBS2006BR13337

PATIENT
  Age: 39 Year
  Sex: Male
  Weight: 74 kg

DRUGS (6)
  1. TEGRETOL [Suspect]
     Indication: BIPOLAR DISORDER
     Dosage: 200 MG, TID
     Route: 048
     Dates: start: 20020101
  2. TEGRETOL [Suspect]
     Dosage: 1 TAB/DAY
     Route: 048
  3. ZYPREXA [Concomitant]
     Indication: BIPOLAR DISORDER
     Dosage: 1 TAB/DAY
     Route: 048
     Dates: start: 20020101
  4. TRILEPTAL [Concomitant]
  5. AMITRIPTYLINE HCL [Concomitant]
     Dosage: 5 MG/DAY
  6. ZETRON [Concomitant]
     Dosage: 1 TAB/DAY
     Route: 048

REACTIONS (7)
  - DENTAL CARIES [None]
  - DRUG INEFFECTIVE [None]
  - FATIGUE [None]
  - LIBIDO DECREASED [None]
  - MENTAL IMPAIRMENT [None]
  - SEXUAL DYSFUNCTION [None]
  - SLUGGISHNESS [None]
